FAERS Safety Report 14771775 (Version 1)
Quarter: 2018Q2

REPORT INFORMATION
  Report Type: Spontaneous
  Country: US (occurrence: US)
  Receive Date: 20180417
  Receipt Date: 20180417
  Transmission Date: 20180711
  Serious: No
  Sender: FDA-Public Use
  Company Number: US-ALLERGAN-1762954US

PATIENT
  Age: 69 Year
  Sex: Female

DRUGS (1)
  1. LUMIGAN [Suspect]
     Active Substance: BIMATOPROST
     Indication: GLAUCOMA
     Dosage: 2 GTT, QHS
     Route: 047
     Dates: start: 2010

REACTIONS (12)
  - Oropharyngeal pain [Recovered/Resolved]
  - Pruritus [Recovered/Resolved]
  - Limb discomfort [Recovered/Resolved]
  - Rhinorrhoea [Not Recovered/Not Resolved]
  - Hypoaesthesia [Recovered/Resolved]
  - Nasopharyngitis [Not Recovered/Not Resolved]
  - Gait disturbance [Recovered/Resolved]
  - Accidental exposure to product [Unknown]
  - Cataract [Not Recovered/Not Resolved]
  - Incorrect dose administered [Unknown]
  - Product container issue [Unknown]
  - Headache [Not Recovered/Not Resolved]

NARRATIVE: CASE EVENT DATE: 2010
